FAERS Safety Report 7618582-5 (Version None)
Quarter: 2011Q3

REPORT INFORMATION
  Report Type: 
  Country: None (occurrence: None)
  Receive Date: 20110718
  Receipt Date: 20110712
  Transmission Date: 20111222
  Serious: Yes (Other)
  Sender: FDA-Public Use
  Company Number: JP-PFIZER INC-2011157604

PATIENT
  Age: 70 Year
  Sex: Male

DRUGS (5)
  1. DOGMATYL [Suspect]
     Dosage: 100 MG, PER DAY
     Dates: start: 20010101
  2. ZOLOFT [Suspect]
     Indication: DEPRESSION
     Dosage: 50 MG, PER DAY
     Route: 048
     Dates: start: 20100426
  3. NORTRIPTYLINE HCL [Concomitant]
     Route: 048
  4. SEPAZON [Concomitant]
     Route: 048
  5. TOLEDOMIN [Suspect]

REACTIONS (3)
  - PARKINSONISM [None]
  - FALL [None]
  - GAIT DISTURBANCE [None]
